FAERS Safety Report 18955930 (Version 3)
Quarter: 2021Q2

REPORT INFORMATION
  Report Type: Report from Study
  Country: None (occurrence: CA)
  Receive Date: 20210302
  Receipt Date: 20210521
  Transmission Date: 20210717
  Serious: Yes (Hospitalization, Other)
  Sender: FDA-Public Use
  Company Number: CA-ABBVIE-21K-028-3794990-00

PATIENT
  Age: 64 Year
  Sex: Male

DRUGS (1)
  1. HUMIRA [Suspect]
     Active Substance: ADALIMUMAB
     Indication: CROHN^S DISEASE
     Route: 058
     Dates: start: 20191010

REACTIONS (8)
  - Gastrointestinal motility disorder [Unknown]
  - Intestinal obstruction [Recovered/Resolved]
  - Fistula [Unknown]
  - Gastrointestinal toxicity [Unknown]
  - Gastrointestinal infection [Unknown]
  - Abscess [Unknown]
  - Gastrointestinal scarring [Unknown]
  - Intestinal obstruction [Unknown]

NARRATIVE: CASE EVENT DATE: 202102
